FAERS Safety Report 9927549 (Version 2)
Quarter: 2015Q2

REPORT INFORMATION
  Report Type: Report from Study
  Country: CA (occurrence: CA)
  Receive Date: 20140227
  Receipt Date: 20150414
  Transmission Date: 20150821
  Serious: Yes (Other)
  Sender: FDA-Public Use
  Company Number: CA-ROCHE-1355377

PATIENT
  Age: 64 Year
  Sex: Female
  Weight: 74 kg

DRUGS (8)
  1. PANTOPRAZOLE [Concomitant]
     Active Substance: PANTOPRAZOLE SODIUM
  2. PRAVASTATIN [Concomitant]
     Active Substance: PRAVASTATIN\PRAVASTATIN SODIUM
  3. RITUXAN [Suspect]
     Active Substance: RITUXIMAB
     Indication: RHEUMATOID ARTHRITIS
     Route: 065
  4. ACTEMRA [Suspect]
     Active Substance: TOCILIZUMAB
     Indication: RHEUMATOID ARTHRITIS
     Route: 042
     Dates: start: 20130604
  5. ACTEMRA [Suspect]
     Active Substance: TOCILIZUMAB
     Dosage: DOSE INCREASED
     Route: 065
     Dates: start: 20140310
  6. INSULINE [Concomitant]
     Active Substance: INSULIN NOS
  7. GABAPENTIN. [Concomitant]
     Active Substance: GABAPENTIN
  8. RISEDRONATE [Concomitant]
     Active Substance: RISEDRONATE SODIUM

REACTIONS (4)
  - Weight increased [Unknown]
  - Pneumonia [Unknown]
  - Drug hypersensitivity [Unknown]
  - Influenza [Unknown]

NARRATIVE: CASE EVENT DATE: 20140213
